FAERS Safety Report 25576714 (Version 1)
Quarter: 2025Q3

REPORT INFORMATION
  Report Type: Spontaneous
  Country: US (occurrence: None)
  Receive Date: 20250717
  Receipt Date: 20250717
  Transmission Date: 20251021
  Serious: Yes (Life-Threatening, Hospitalization, Other)
  Sender: FDA-CTU
  Company Number: None

PATIENT
  Age: 73 Year
  Sex: Female
  Weight: 74.39 kg

DRUGS (1)
  1. LECANEMAB [Suspect]
     Active Substance: LECANEMAB
     Indication: Dementia Alzheimer^s type
     Dosage: FREQUENCY : EVERY OTHER WEEK;?
     Route: 042
     Dates: start: 20250515, end: 20250626

REACTIONS (20)
  - Headache [None]
  - Dizziness [None]
  - Gallbladder disorder [None]
  - Nausea [None]
  - Neuropsychological symptoms [None]
  - Fatigue [None]
  - Visual impairment [None]
  - Vision blurred [None]
  - Gait disturbance [None]
  - Hallucination [None]
  - Patient elopement [None]
  - Depression [None]
  - Apathy [None]
  - Disinhibition [None]
  - Sleep disorder [None]
  - Delusion [None]
  - Unresponsive to stimuli [None]
  - Seizure [None]
  - Coma [None]
  - Cognitive disorder [None]

NARRATIVE: CASE EVENT DATE: 20250710
